FAERS Safety Report 8512616-1 (Version None)
Quarter: 2012Q3

REPORT INFORMATION
  Report Type: 
  Country: None (occurrence: None)
  Receive Date: 20120716
  Receipt Date: 20120706
  Transmission Date: 20120928
  Serious: Yes (Hospitalization)
  Sender: FDA-Public Use
  Company Number: US-ABBOTT-12P-163-0954196-05

PATIENT
  Sex: Female
  Weight: 94 kg

DRUGS (17)
  1. PREDNISONE [Concomitant]
     Indication: CROHN'S DISEASE
     Dates: start: 20110829, end: 20110921
  2. COLACE [Concomitant]
     Indication: CONSTIPATION
     Dates: start: 20101210
  3. HUMIRA [Suspect]
     Route: 058
  4. FOSAMAX [Concomitant]
     Indication: OSTEOPENIA
     Dates: start: 20120116
  5. NORCO [Concomitant]
     Indication: PAIN
     Dosage: 10-325 MG
     Dates: start: 20101210
  6. PROVENTIL [Concomitant]
     Indication: DYSPNOEA
     Dosage: 2.5  MG/3 ML
     Dates: start: 20110511
  7. CALCIUM CARBONATE [Concomitant]
     Indication: OSTEOPENIA
     Dates: start: 20120116
  8. ZITHROMAX [Concomitant]
     Indication: PHARYNGITIS STREPTOCOCCAL
     Dates: start: 20120315, end: 20120319
  9. HUMIRA [Suspect]
     Indication: CROHN'S DISEASE
     Route: 058
     Dates: start: 20090311, end: 20090311
  10. TORADOL [Concomitant]
     Indication: PAIN
     Dates: start: 20110310, end: 20110310
  11. PREDNISONE [Concomitant]
     Dates: start: 20110921, end: 20120116
  12. HUMIRA [Suspect]
     Route: 058
  13. PREDNISONE [Concomitant]
     Dates: start: 20120116
  14. VITAMIN D2 [Concomitant]
     Indication: VITAMIN D DEFICIENCY
     Dosage: X 6 DAYS, THEN 1 TIME PER WEEK
     Dates: start: 20101210
  15. CYANOCOBALAMIN [Concomitant]
     Indication: VITAMIN B12 DECREASED
     Route: 050
     Dates: start: 20111212
  16. FOLIC ACID [Concomitant]
     Indication: PROPHYLAXIS
     Dates: start: 20120227
  17. VENTOLIN [Concomitant]
     Indication: DYSPNOEA
     Dates: start: 20110310, end: 20110511

REACTIONS (8)
  - MICROANGIOPATHY [None]
  - SMALL INTESTINAL OBSTRUCTION [None]
  - INFLAMMATORY BOWEL DISEASE [None]
  - HEADACHE [None]
  - GAIT DISTURBANCE [None]
  - PAIN IN EXTREMITY [None]
  - PARAESTHESIA [None]
  - HYPOAESTHESIA [None]
